FAERS Safety Report 5731642-9 (Version None)
Quarter: 2008Q2

REPORT INFORMATION
  Report Type: 
  Country: None (occurrence: None)
  Receive Date: 20080508
  Receipt Date: 20080501
  Transmission Date: 20081010
  Serious: Yes (Other)
  Sender: FDA-Public Use
  Company Number: PHHY2008GB07059

PATIENT
  Age: 9 Year
  Sex: Male

DRUGS (1)
  1. EXJADE [Suspect]
     Indication: SERUM FERRITIN INCREASED
     Dosage: 20 MG/KG, UNK
     Dates: start: 20080421, end: 20080430

REACTIONS (3)
  - BLISTER [None]
  - MEASLES [None]
  - RASH GENERALISED [None]
